FAERS Safety Report 9790609 (Version 3)
Quarter: 2014Q1

REPORT INFORMATION
  Report Type: Report from Study
  Country: IT (occurrence: IT)
  Receive Date: 20131231
  Receipt Date: 20140203
  Transmission Date: 20141002
  Serious: Yes (Hospitalization, Disabling, Other)
  Sender: FDA-Public Use
  Company Number: PHHY2010IT42604

PATIENT
  Age: 64 Year
  Sex: Male
  Weight: 75 kg

DRUGS (13)
  1. CERTICAN [Suspect]
     Indication: GRAFT COMPLICATION
     Dosage: 0.75 MG/DIE
     Route: 048
     Dates: start: 20080711
  2. CERTICAN [Suspect]
     Indication: PROPHYLAXIS AGAINST TRANSPLANT REJECTION
     Dosage: 0.75 MG, BID
     Route: 048
     Dates: start: 20110509, end: 20130827
  3. SANDIMMUN NEORAL [Concomitant]
     Indication: PROPHYLAXIS AGAINST TRANSPLANT REJECTION
     Dosage: 50 MG, BID
     Dates: start: 20100104
  4. SANDIMMUN NEORAL [Concomitant]
     Dosage: 175 MG, UNK
  5. DELTACORTENE [Concomitant]
     Indication: PROPHYLAXIS AGAINST TRANSPLANT REJECTION
     Dosage: 10 MG, BID
     Dates: start: 20050721
  6. CELLCEPT [Concomitant]
     Indication: PROPHYLAXIS AGAINST TRANSPLANT REJECTION
     Dosage: 1000 MG, BID
     Dates: start: 20100827
  7. CEFTAZIDIME [Concomitant]
     Dosage: UNK UKN, UNK
  8. METRONIDAZOLE [Concomitant]
     Dosage: UNK UKN, UNK
  9. TEICOPLANIN [Concomitant]
     Dosage: UNK UKN, UNK
  10. HUMALOG [Concomitant]
     Dosage: 24 UNITS (5 UNITS, 9 UNITS AT LUNCH AND 10 UNITS IN EVENING)
  11. CLEXANE [Concomitant]
     Dosage: 6000 MG, 1 VIAL
  12. DIURETICS [Concomitant]
     Dosage: UNK UKN, UNK
  13. CICLOSPORINE [Concomitant]
     Indication: PROPHYLAXIS AGAINST TRANSPLANT REJECTION
     Dosage: 100 MG, UNK
     Route: 048

REACTIONS (16)
  - Extremity necrosis [Recovered/Resolved with Sequelae]
  - Peripheral ischaemia [Recovered/Resolved with Sequelae]
  - Pain in extremity [Unknown]
  - Skin ulcer [Unknown]
  - Cellulitis [Recovered/Resolved with Sequelae]
  - Abscess limb [Unknown]
  - Erythema [Unknown]
  - Femur fracture [Unknown]
  - Arterial stenosis [Unknown]
  - Arterial fibrosis [Unknown]
  - Vascular calcification [Unknown]
  - Arterial insufficiency [Unknown]
  - Peripheral artery thrombosis [Unknown]
  - Cardiac murmur [Unknown]
  - Normochromic normocytic anaemia [Unknown]
  - Oedema peripheral [Unknown]
